FAERS Safety Report 8966803 (Version 1)
Quarter: 2012Q4

REPORT INFORMATION
  Report Type: 
  Country: US (occurrence: US)
  Receive Date: 20121214
  Receipt Date: 20121214
  Transmission Date: 20130627
  Serious: Yes (Other)
  Sender: FDA-Public Use
  Company Number: CHPA2012US025008

PATIENT
  Sex: Female

DRUGS (1)
  1. THERAFLU VAPOR PATCH [Suspect]
     Indication: BRONCHITIS
     Dosage: Unk, Unk

REACTIONS (4)
  - Bronchitis [Not Recovered/Not Resolved]
  - Disease recurrence [Not Recovered/Not Resolved]
  - Therapeutic response unexpected [Unknown]
  - Off label use [Unknown]
